FAERS Safety Report 9387564 (Version 1)
Quarter: 2013Q3

REPORT INFORMATION
  Report Type: Spontaneous
  Country: US (occurrence: US)
  Receive Date: 20130708
  Receipt Date: 20130708
  Transmission Date: 20140515
  Serious: Yes (Other)
  Sender: FDA-Public Use
  Company Number: US-TEVA-411327USA

PATIENT
  Age: 35 Year
  Sex: Female
  Weight: 72.19 kg

DRUGS (3)
  1. PARAGARD 380A [Suspect]
     Indication: CONTRACEPTION
     Dates: start: 20130507, end: 20130606
  2. WELLBUTRIN [Concomitant]
  3. CYMBALTA [Concomitant]

REACTIONS (2)
  - Embedded device [Recovered/Resolved]
  - Pelvic pain [Recovered/Resolved]
